FAERS Safety Report 8680572 (Version 2)
Quarter: 2012Q4

REPORT INFORMATION
  Report Type: 
  Country: FR (occurrence: FR)
  Receive Date: 20120724
  Receipt Date: 20121102
  Transmission Date: 20130627
  Serious: Yes (Life-Threatening)
  Sender: FDA-Public Use
  Company Number: FR-ASTRAZENECA-2012SE50325

PATIENT
  Sex: Female

DRUGS (6)
  1. DIPRIVAN [Suspect]
     Indication: INDUCTION OF ANAESTHESIA
     Route: 042
     Dates: start: 20120615, end: 20120615
  2. SUXAMETHONIUM [Suspect]
     Indication: INDUCTION OF ANAESTHESIA
     Route: 042
     Dates: start: 20120615, end: 20120615
  3. SUFENTANYL [Suspect]
     Indication: INDUCTION OF ANAESTHESIA
     Route: 042
     Dates: start: 20120615, end: 20120615
  4. ROCEPHINE [Concomitant]
     Indication: ANTIBIOTIC THERAPY
  5. GENTAMICINE [Concomitant]
     Indication: ANTIBIOTIC THERAPY
  6. CIFLOX [Concomitant]
     Indication: ANTIBIOTIC THERAPY

REACTIONS (1)
  - Anaphylactic shock [Recovered/Resolved]
